FAERS Safety Report 4662060-2 (Version None)
Quarter: 2005Q2

REPORT INFORMATION
  Report Type: 
  Country: None (occurrence: None)
  Receive Date: 20050512
  Receipt Date: 20050429
  Transmission Date: 20051028
  Serious: Yes (Hospitalization)
  Sender: FDA-Public Use
  Company Number: 2005068386

PATIENT
  Age: 66 Year
  Sex: Male
  Weight: 95.2554 kg

DRUGS (7)
  1. DETROL LA [Suspect]
     Indication: BENIGN PROSTATIC HYPERPLASIA
     Dosage: 2 MG (2 MG, 1 IN 1 D), ORAL
     Route: 048
     Dates: start: 20040901
  2. ALFUZOSIN HYDROCHLORIDE (ALFUZOSIN HYDROCHLORIDE) [Suspect]
     Indication: BENIGN PROSTATIC HYPERPLASIA
     Dosage: 10 MG (10  MG, 1 IN 1 D), ORAL
     Route: 048
     Dates: start: 20040901
  3. ATENOLOL [Concomitant]
  4. WARFARIN SODIUM [Concomitant]
  5. HYDROCHLOROTHIAZIDE [Concomitant]
  6. DIPYRIDAMOLE [Concomitant]
  7. NEFAZODONE HCL [Concomitant]

REACTIONS (8)
  - ASTHENIA [None]
  - ATRIAL FIBRILLATION [None]
  - DECREASED ACTIVITY [None]
  - EPIDIDYMITIS [None]
  - LABORATORY TEST ABNORMAL [None]
  - LDL/HDL RATIO [None]
  - SOMNOLENCE [None]
  - WEIGHT INCREASED [None]
